FAERS Safety Report 9998052 (Version 2)
Quarter: 2014Q2

REPORT INFORMATION
  Report Type: Spontaneous
  Country: US (occurrence: US)
  Receive Date: 20140311
  Receipt Date: 20140425
  Transmission Date: 20141212
  Serious: Yes (Other)
  Sender: FDA-Public Use
  Company Number: US-ASTRAZENECA-2014SE15514

PATIENT
  Age: 59 Year
  Sex: Male
  Weight: 63.5 kg

DRUGS (3)
  1. SYMBICORT [Suspect]
     Indication: CHRONIC OBSTRUCTIVE PULMONARY DISEASE
     Dosage: 160/4.5 MCG TWO PUFFS BID
     Route: 055
     Dates: start: 201106
  2. ALBUTEROL INHALER [Concomitant]
  3. OTHER(S) [Concomitant]

REACTIONS (3)
  - Lung neoplasm malignant [Not Recovered/Not Resolved]
  - Dyspnoea [Unknown]
  - Intentional product misuse [Recovered/Resolved]
